FAERS Safety Report 9764550 (Version 1)
Quarter: 2013Q4

REPORT INFORMATION
  Report Type: Report from Study
  Country: CA (occurrence: CA)
  Receive Date: 20131217
  Receipt Date: 20131217
  Transmission Date: 20140711
  Serious: Yes (Other)
  Sender: FDA-Public Use
  Company Number: CA-ROCHE-1319280

PATIENT
  Sex: Female

DRUGS (6)
  1. ACTEMRA [Suspect]
     Indication: RHEUMATOID ARTHRITIS
     Route: 042
     Dates: start: 20101018
  2. ACTEMRA [Suspect]
     Route: 042
     Dates: start: 20101115
  3. ACTEMRA [Suspect]
     Route: 042
     Dates: start: 20120110
  4. REMICADE [Concomitant]
  5. TYLENOL [Concomitant]
     Route: 065
  6. ADVIL [Concomitant]
     Route: 065

REACTIONS (1)
  - Corneal disorder [Unknown]
